FAERS Safety Report 6263375-7 (Version None)
Quarter: 2009Q3

REPORT INFORMATION
  Report Type: 
  Country: None (occurrence: None)
  Receive Date: 20090710
  Receipt Date: 20080902
  Transmission Date: 20100115
  Serious: No
  Sender: FDA-Public Use
  Company Number: A0745670A

PATIENT
  Age: 40 Year
  Sex: Male

DRUGS (2)
  1. FLOVENT [Suspect]
     Dosage: 1SPR TWICE PER DAY
     Route: 055
     Dates: start: 20080826
  2. MULTIPLE MEDICATION [Concomitant]

REACTIONS (1)
  - ILL-DEFINED DISORDER [None]
